FAERS Safety Report 7741443-8 (Version None)
Quarter: 2011Q3

REPORT INFORMATION
  Report Type: 
  Country: None (occurrence: None)
  Receive Date: 20110909
  Receipt Date: 20110907
  Transmission Date: 20111222
  Serious: Yes (Hospitalization, Disabling, Other)
  Sender: FDA-Public Use
  Company Number: FR-ABBOTT-11P-056-0852100-00

PATIENT
  Sex: Male

DRUGS (2)
  1. HUMIRA [Suspect]
     Indication: ANKYLOSING SPONDYLITIS
     Route: 058
     Dates: start: 20071026
  2. HUMIRA [Suspect]
     Route: 058
     Dates: start: 20081201, end: 20110708

REACTIONS (5)
  - BONE PAIN [None]
  - OPTIC NEURITIS [None]
  - DEMYELINATION [None]
  - PARAESTHESIA [None]
  - VISUAL ACUITY REDUCED [None]
